FAERS Safety Report 25056330 (Version 2)
Quarter: 2025Q1

REPORT INFORMATION
  Report Type: Spontaneous
  Country: US (occurrence: US)
  Receive Date: 20250310
  Receipt Date: 20250317
  Transmission Date: 20250408
  Serious: No
  Sender: AMGEN
  Company Number: US-AMGEN-USASP2025045521

PATIENT
  Sex: Female

DRUGS (10)
  1. OTEZLA [Suspect]
     Active Substance: APREMILAST
     Indication: Psoriasis
     Dosage: 30 MILLIGRAM, BID
     Route: 048
     Dates: start: 20231214
  2. CALCIPOTRIENE [Concomitant]
     Active Substance: CALCIPOTRIENE
  3. CLOBETASOL [Concomitant]
     Active Substance: CLOBETASOL
  4. FLUOCINOLONE ACETONIDE [Concomitant]
     Active Substance: FLUOCINOLONE ACETONIDE
  5. GAVILYTE G [Concomitant]
     Active Substance: POLYETHYLENE GLYCOL 3350\POTASSIUM CHLORIDE\SODIUM BICARBONATE\SODIUM CHLORIDE\SODIUM SULFATE
  6. RESTASIS [Concomitant]
     Active Substance: CYCLOSPORINE
  7. TAFLUPROST [Concomitant]
     Active Substance: TAFLUPROST
  8. TIMOLOL MALEATE [Concomitant]
     Active Substance: TIMOLOL MALEATE
  9. ZIOPTAN [Concomitant]
     Active Substance: TAFLUPROST
  10. ZORYVE [Concomitant]
     Active Substance: ROFLUMILAST

REACTIONS (3)
  - Therapy non-responder [Unknown]
  - Rash [Not Recovered/Not Resolved]
  - Discomfort [Not Recovered/Not Resolved]
